FAERS Safety Report 18232389 (Version 2)
Quarter: 2020Q3

REPORT INFORMATION
  Report Type: Spontaneous
  Country: US (occurrence: US)
  Receive Date: 20200904
  Receipt Date: 20200904
  Transmission Date: 20201103
  Serious: No
  Sender: FDA-Public Use
  Company Number: US-AMERICAN REGENT INC-2020001203

PATIENT
  Sex: Female

DRUGS (1)
  1. INJECTAFER [Suspect]
     Active Substance: FERRIC CARBOXYMALTOSE
     Indication: ANAEMIA
     Dosage: 750 MILLIGRAM, PRN
     Dates: start: 20200514, end: 20200514

REACTIONS (2)
  - Extravasation [Unknown]
  - Administration site discolouration [Not Recovered/Not Resolved]

NARRATIVE: CASE EVENT DATE: 2020
